FAERS Safety Report 18795243 (Version 1)
Quarter: 2021Q1

REPORT INFORMATION
  Report Type: Report from Study
  Country: US (occurrence: US)
  Receive Date: 20210127
  Receipt Date: 20210127
  Transmission Date: 20210419
  Serious: Yes (Hospitalization, Other)
  Sender: FDA-Public Use
  Company Number: US-JNJFOC-20210137871

PATIENT
  Age: 7 Year
  Sex: Male
  Weight: 18.4 kg

DRUGS (6)
  1. METHOTREXATE. [Suspect]
     Active Substance: METHOTREXATE
     Indication: ACUTE LYMPHOCYTIC LEUKAEMIA
     Route: 037
     Dates: start: 20210104, end: 20210104
  2. PREDNISONE. [Suspect]
     Active Substance: PREDNISONE
     Indication: ACUTE LYMPHOCYTIC LEUKAEMIA
     Dosage: NOT ON IV METHYLPREDNISONE DAYS
     Route: 048
     Dates: start: 20210105
  3. DARATUMUMAB [Suspect]
     Active Substance: DARATUMUMAB
     Indication: PRECURSOR T-LYMPHOBLASTIC LYMPHOMA/LEUKAEMIA
     Route: 042
     Dates: start: 20210104
  4. DOXORUBICIN HYDROCHLORIDE. [Suspect]
     Active Substance: DOXORUBICIN HYDROCHLORIDE
     Indication: ACUTE LYMPHOCYTIC LEUKAEMIA
     Route: 042
     Dates: start: 20210105, end: 20210105
  5. PEG/L?ASPARAGINASE [Suspect]
     Active Substance: PEGASPARGASE
     Indication: ACUTE LYMPHOCYTIC LEUKAEMIA
     Route: 042
     Dates: start: 20210105, end: 20210105
  6. VINCRISTINE [Suspect]
     Active Substance: VINCRISTINE
     Indication: ACUTE LYMPHOCYTIC LEUKAEMIA
     Route: 042
     Dates: start: 20210105

REACTIONS (1)
  - Febrile neutropenia [Recovered/Resolved]

NARRATIVE: CASE EVENT DATE: 20210116
